FAERS Safety Report 12750553 (Version 2)
Quarter: 2016Q4

REPORT INFORMATION
  Report Type: Spontaneous
  Country: DE (occurrence: DE)
  Receive Date: 20160916
  Receipt Date: 20161214
  Transmission Date: 20170207
  Serious: Yes (Disabling, Other)
  Sender: FDA-Public Use
  Company Number: DE-BAYER-2016-176038

PATIENT
  Age: 38 Year
  Sex: Female
  Weight: 68 kg

DRUGS (12)
  1. MAGNEVIST [Suspect]
     Active Substance: GADOPENTETATE DIMEGLUMINE
     Dosage: 12 ML, ONCE
     Dates: start: 20091103, end: 20091103
  2. MAGNEVIST [Suspect]
     Active Substance: GADOPENTETATE DIMEGLUMINE
     Dosage: 15 ML, ONCE
     Dates: start: 20120716, end: 20120716
  3. GADOLINIUM IN UNSPECIFIED DRUG [Suspect]
     Active Substance: GADOLINIUM
     Dosage: UNK, ONCE
     Dates: start: 19990506, end: 19990506
  4. GADOLINIUM IN UNSPECIFIED DRUG [Suspect]
     Active Substance: GADOLINIUM
     Dosage: UNK, ONCE
     Dates: start: 20001006, end: 20001006
  5. GADOLINIUM IN UNSPECIFIED DRUG [Suspect]
     Active Substance: GADOLINIUM
     Dosage: UNK, ONCE
     Dates: start: 20010706, end: 20010706
  6. DOTAREM [Suspect]
     Active Substance: GADOTERATE MEGLUMINE
     Dosage: 10 ML, ONCE
     Dates: start: 20131108, end: 20131108
  7. GADOVIST [Suspect]
     Active Substance: GADOBUTROL
     Dosage: 7.5 ML, ONCE
     Dates: start: 20121221, end: 20121221
  8. GADOVIST [Suspect]
     Active Substance: GADOBUTROL
     Dosage: 9 ML, ONCE
     Dates: start: 20150330, end: 20150330
  9. MAGNEVIST [Suspect]
     Active Substance: GADOPENTETATE DIMEGLUMINE
     Dosage: 11 ML, ONCE
     Dates: start: 20100811, end: 20100811
  10. DOTAREM [Suspect]
     Active Substance: GADOTERATE MEGLUMINE
     Dosage: 15 ML, ONCE
     Dates: start: 20150225, end: 20150225
  11. DOTAREM [Suspect]
     Active Substance: GADOTERATE MEGLUMINE
     Dosage: 15 ML, ONCE
     Dates: start: 20151005, end: 20151005
  12. DOTAREM [Suspect]
     Active Substance: GADOTERATE MEGLUMINE
     Dosage: 10 ML, ONCE
     Dates: start: 20150805, end: 20150805

REACTIONS (1)
  - Small fibre neuropathy [Not Recovered/Not Resolved]

NARRATIVE: CASE EVENT DATE: 201511
